FAERS Safety Report 11271549 (Version 2)
Quarter: 2016Q1

REPORT INFORMATION
  Report Type: Report from Study
  Country: US (occurrence: US)
  Receive Date: 20150714
  Receipt Date: 20160126
  Transmission Date: 20160525
  Serious: Yes (Other)
  Sender: FDA-Public Use
  Company Number: PHEH2015US010684

PATIENT
  Age: 29 Year
  Sex: Female
  Weight: 63 kg

DRUGS (3)
  1. GILENYA [Suspect]
     Active Substance: FINGOLIMOD HYDROCHLORIDE
     Dosage: 0.5 MG, QD
     Route: 048
     Dates: start: 20150702, end: 20150708
  2. GILENYA [Suspect]
     Active Substance: FINGOLIMOD HYDROCHLORIDE
     Indication: RELAPSING-REMITTING MULTIPLE SCLEROSIS
     Dosage: 0.5 MG, QD
     Route: 048
     Dates: start: 20150201, end: 20150522
  3. GILENYA [Suspect]
     Active Substance: FINGOLIMOD HYDROCHLORIDE
     Dosage: 0.5 MG, QD
     Route: 048
     Dates: start: 20150713

REACTIONS (7)
  - Post procedural cellulitis [Recovered/Resolved]
  - Nausea [Unknown]
  - Heart rate decreased [Recovered/Resolved]
  - Ingrowing nail [Recovered/Resolved]
  - Dizziness [Recovered/Resolved]
  - Nail infection [Recovered/Resolved]
  - Leukopenia [Unknown]

NARRATIVE: CASE EVENT DATE: 201503
